FAERS Safety Report 18382273 (Version 1)
Quarter: 2020Q4

REPORT INFORMATION
  Report Type: Spontaneous
  Country: US (occurrence: US)
  Receive Date: 20201014
  Receipt Date: 20201014
  Transmission Date: 20210114
  Serious: No
  Sender: FDA-Public Use
  Company Number: US-ALLERGAN-2031554US

PATIENT
  Age: 66 Year
  Sex: Female

DRUGS (1)
  1. UBRELVY [Suspect]
     Active Substance: UBROGEPANT
     Indication: MIGRAINE
     Dosage: 100 MG, PRN
     Route: 048
     Dates: start: 20200727

REACTIONS (2)
  - Urticaria [Not Recovered/Not Resolved]
  - Mast cell degranulation present [Not Recovered/Not Resolved]

NARRATIVE: CASE EVENT DATE: 202007
